FAERS Safety Report 6141397-4 (Version None)
Quarter: 2009Q2

REPORT INFORMATION
  Report Type: 
  Country: None (occurrence: None)
  Receive Date: 20090402
  Receipt Date: 20090323
  Transmission Date: 20091009
  Serious: Yes (Hospitalization)
  Sender: FDA-Public Use
  Company Number: US-AMGEN-TCS339716

PATIENT
  Sex: Female

DRUGS (2)
  1. ENBREL [Suspect]
     Indication: RHEUMATOID ARTHRITIS
     Route: 058
     Dates: start: 20080519
  2. METHOTREXATE [Concomitant]

REACTIONS (6)
  - IMPAIRED HEALING [None]
  - INJECTION SITE PAIN [None]
  - MENORRHAGIA [None]
  - RHEUMATOID ARTHRITIS [None]
  - STAPHYLOCOCCAL INFECTION [None]
  - WOUND INFECTION [None]
